FAERS Safety Report 5047150-7 (Version None)
Quarter: 2006Q3

REPORT INFORMATION
  Report Type: 
  Country: None (occurrence: None)
  Receive Date: 20060703
  Receipt Date: 20060628
  Transmission Date: 20061208
  Serious: Yes (Hospitalization)
  Sender: FDA-Public Use
  Company Number: THQ2006A00556

PATIENT
  Age: 76 Year
  Sex: Male

DRUGS (11)
  1. LANSOPRAZOLE [Suspect]
     Dosage: 15 MG (15 MG, 1 IN 1 D) PER ORAL
     Route: 048
     Dates: start: 20011217
  2. ATACAND [Suspect]
     Dosage: 8 MG (8 MG, 1 IN 1 D) PER ORAL
     Route: 048
     Dates: start: 20011217
  3. VERAPAMIL [Suspect]
     Dosage: 360 MG (120 MG, 3 IN 1 D) PER ORAL
     Route: 048
     Dates: start: 20011217, end: 20060609
  4. PLAVIX [Suspect]
     Dosage: 75 MG (75 MG, 1 IN 1 D) PER ORAL
     Route: 048
     Dates: start: 20011217
  5. ZOLPIDEM TARTRATE [Suspect]
     Dosage: 5 MG (5 MG, 1 IN 1 D)
     Dates: start: 20011217
  6. FONZYLANE    (BUFLOMEDIL HYDROCHLORIDE) (TABLETS) [Suspect]
     Dosage: 900 MG (300 MG, 3 IN 1 D), PER ORAL
     Route: 048
     Dates: start: 20011217
  7. CRESTOR [Concomitant]
  8. GAVISCON [Concomitant]
  9. TRANSIPEG                     (MACROGOL) [Concomitant]
  10. MODOPAR (MADOPAR) [Concomitant]
  11. ARTANE [Concomitant]

REACTIONS (5)
  - CEREBRAL ATROPHY [None]
  - CHOREA [None]
  - EXTRAPYRAMIDAL DISORDER [None]
  - LEUKOENCEPHALOPATHY [None]
  - PERIPHERAL SENSORY NEUROPATHY [None]
